FAERS Safety Report 11473593 (Version 1)
Quarter: 2015Q3

REPORT INFORMATION
  Report Type: Spontaneous
  Country: US (occurrence: None)
  Receive Date: 20150908
  Receipt Date: 20150908
  Transmission Date: 20151125
  Serious: Yes (Hospitalization, Disabling, Other)
  Sender: FDA-Public Use
  Company Number: None

PATIENT
  Age: 68 Year
  Sex: Female
  Weight: 63.05 kg

DRUGS (1)
  1. GADOLINIUM [Suspect]
     Active Substance: GADOLINIUM
     Indication: NUCLEAR MAGNETIC RESONANCE IMAGING

REACTIONS (10)
  - Skin burning sensation [None]
  - Abasia [None]
  - Rash macular [None]
  - Urine output increased [None]
  - Rash [None]
  - Dysuria [None]
  - Vomiting [None]
  - Poor venous access [None]
  - Reaction to azo-dyes [None]
  - Urticaria [None]

NARRATIVE: CASE EVENT DATE: 20150706
